FAERS Safety Report 24016543 (Version 2)
Quarter: 2024Q3

REPORT INFORMATION
  Report Type: Report from Study
  Country: US (occurrence: US)
  Receive Date: 20240626
  Receipt Date: 20240709
  Transmission Date: 20241017
  Serious: No
  Sender: APELLIS PHARMACEUTICALS
  Company Number: US-APELLIS-2024-APL-0000122

PATIENT

DRUGS (5)
  1. PEGCETACOPLAN [Suspect]
     Active Substance: PEGCETACOPLAN
     Indication: Paroxysmal nocturnal haemoglobinuria
     Dosage: 1080MG/20ML TWICE A WEEK
     Route: 058
     Dates: start: 20240426
  2. PEGCETACOPLAN [Suspect]
     Active Substance: PEGCETACOPLAN
     Dosage: 1080MG/20ML
     Route: 058
     Dates: start: 20240507
  3. ULTOMIRIS [Concomitant]
     Active Substance: RAVULIZUMAB-CWVZ
     Indication: Product used for unknown indication
  4. FOLIC ACID [Concomitant]
     Active Substance: FOLIC ACID
     Indication: Product used for unknown indication
  5. PENICILLIN [Concomitant]
     Active Substance: PENICILLIN
     Indication: Product used for unknown indication

REACTIONS (7)
  - Infusion site swelling [Recovered/Resolved]
  - Headache [Unknown]
  - Fatigue [Unknown]
  - Infusion site discolouration [Recovered/Resolved]
  - Urticaria [Unknown]
  - Infusion site mass [Not Recovered/Not Resolved]
  - Infusion site discolouration [Not Recovered/Not Resolved]

NARRATIVE: CASE EVENT DATE: 20240507
